FAERS Safety Report 8079960-6 (Version None)
Quarter: 2012Q1

REPORT INFORMATION
  Report Type: 
  Country: None (occurrence: None)
  Receive Date: 20120128
  Receipt Date: 20110802
  Transmission Date: 20120608
  Serious: No
  Sender: FDA-Public Use
  Company Number: US-ABBOTT-11P-163-0843603-00

PATIENT
  Age: 59 Year
  Sex: Female

DRUGS (3)
  1. ISONIAZID [Concomitant]
     Indication: PRODUCT USED FOR UNKNOWN INDICATION
     Dates: start: 20110601
  2. HUMIRA [Suspect]
     Indication: PSORIASIS
     Dates: start: 20110708
  3. VIT B6 [Concomitant]
     Indication: PRODUCT USED FOR UNKNOWN INDICATION
     Dates: start: 20110701

REACTIONS (6)
  - LOWER RESPIRATORY TRACT INFECTION [None]
  - FATIGUE [None]
  - VOMITING [None]
  - HYPERHIDROSIS [None]
  - DIARRHOEA [None]
  - COUGH [None]
